FAERS Safety Report 5249407-3 (Version None)
Quarter: 2007Q1

REPORT INFORMATION
  Report Type: 
  Country: None (occurrence: None)
  Receive Date: 20070228
  Receipt Date: 20061205
  Transmission Date: 20070707
  Serious: No
  Sender: FDA-Public Use
  Company Number: US-GLAXOSMITHKLINE-A0623067A

PATIENT
  Age: 62 Year
  Sex: Female

DRUGS (3)
  1. VALTREX [Suspect]
     Dosage: 500MG TWICE PER DAY
     Route: 048
     Dates: start: 20030101
  2. ZOLOFT [Concomitant]
  3. ALPRAZOLAM [Concomitant]

REACTIONS (2)
  - HERPES SIMPLEX [None]
  - PHARMACEUTICAL PRODUCT COMPLAINT [None]
